FAERS Safety Report 5442192-1 (Version None)
Quarter: 2007Q3

REPORT INFORMATION
  Report Type: 
  Country: None (occurrence: None)
  Receive Date: 20070829
  Receipt Date: 20070814
  Transmission Date: 20080115
  Serious: Yes (Other)
  Sender: FDA-Public Use
  Company Number: 2007RR-09180

PATIENT
  Age: 44 Year
  Sex: Female

DRUGS (1)
  1. MINOCYCLINA AMPDR 100MG CAPSULAS DE LIBERTACAO MODIFICADA(MINOCYCLINE) [Suspect]
     Indication: ACNE
     Dosage: 50 MG, QD, ORAL
     Route: 048

REACTIONS (2)
  - PAPILLARY THYROID CANCER [None]
  - PIGMENTATION DISORDER [None]
